FAERS Safety Report 6967793-0 (Version None)
Quarter: 2010Q3

REPORT INFORMATION
  Report Type: 
  Country: None (occurrence: None)
  Receive Date: 20100907
  Receipt Date: 20100825
  Transmission Date: 20110219
  Serious: Yes (Other)
  Sender: FDA-Public Use
  Company Number: US-BAYER-201032333NA

PATIENT
  Age: 75 Year
  Sex: Male

DRUGS (2)
  1. MAGNEVIST [Suspect]
     Indication: PRODUCT USED FOR UNKNOWN INDICATION
     Dates: start: 20070101, end: 20070101
  2. STEROIDS [Concomitant]
     Dosage: BEING WEANED OFF

REACTIONS (4)
  - HEART RATE DECREASED [None]
  - NAUSEA [None]
  - RESPIRATORY RATE DECREASED [None]
  - URTICARIA [None]
